FAERS Safety Report 12114690 (Version 1)
Quarter: 2016Q1

REPORT INFORMATION
  Report Type: Spontaneous
  Country: US (occurrence: US)
  Receive Date: 20160225
  Receipt Date: 20160225
  Transmission Date: 20160526
  Serious: Yes (Other)
  Sender: FDA-Public Use
  Company Number: US-PFIZER INC-2016105352

PATIENT
  Age: 36 Year
  Sex: Female

DRUGS (6)
  1. REMODULIN [Suspect]
     Active Substance: TREPROSTINIL
     Indication: PULMONARY ARTERIAL HYPERTENSION
     Dosage: UNK
     Route: 058
  2. AMBRISENTAN [Suspect]
     Active Substance: AMBRISENTAN
     Indication: PULMONARY ARTERIAL HYPERTENSION
     Dosage: 10MG, QD
     Route: 048
     Dates: start: 20071121
  3. ADCIRCA [Suspect]
     Active Substance: TADALAFIL
     Dosage: UNK
  4. COUMADIN [Suspect]
     Active Substance: WARFARIN SODIUM
     Dosage: UNK
  5. REVATIO [Suspect]
     Active Substance: SILDENAFIL CITRATE
     Dosage: UNK
  6. AMBRISENTAN [Suspect]
     Active Substance: AMBRISENTAN
     Dosage: UNK

REACTIONS (8)
  - Infusion site haemorrhage [Unknown]
  - Infusion site induration [Unknown]
  - Infusion site swelling [Unknown]
  - Infusion site erythema [Unknown]
  - Infusion site infection [Recovered/Resolved]
  - Gingival bleeding [Unknown]
  - Infusion site abscess [Unknown]
  - Infusion site pruritus [Unknown]

NARRATIVE: CASE EVENT DATE: 201511
